FAERS Safety Report 8551988 (Version 3)
Quarter: 2012Q4

REPORT INFORMATION
  Report Type: Report from Study
  Country: CA (occurrence: CA)
  Receive Date: 20120508
  Receipt Date: 20121023
  Transmission Date: 20130627
  Serious: Yes (Hospitalization, Other)
  Sender: FDA-Public Use
  Company Number: CA-ROCHE-1063036

PATIENT
  Age: 72 Year
  Sex: Female
  Weight: 56.3 kg

DRUGS (11)
  1. TOCILIZUMAB [Suspect]
     Indication: RHEUMATOID ARTHRITIS
     Route: 042
     Dates: start: 20101229
  2. CELEBREX [Concomitant]
  3. PREDNISONE [Concomitant]
  4. RISEDRONATE [Concomitant]
  5. FOLINIC ACID [Concomitant]
  6. VENLAFAXINE [Concomitant]
  7. ZOPICLONE [Concomitant]
     Indication: INSOMNIA
  8. CRESTOR [Concomitant]
  9. LAMISIL [Concomitant]
  10. METRONIDAZOLE [Concomitant]
  11. LEUCOVORIN [Concomitant]

REACTIONS (4)
  - Sciatica [Recovering/Resolving]
  - Osteoporosis [Not Recovered/Not Resolved]
  - Back pain [Recovered/Resolved]
  - Rheumatoid arthritis [Recovered/Resolved]
